FAERS Safety Report 13883000 (Version 5)
Quarter: 2019Q3

REPORT INFORMATION
  Report Type: Report from Study
  Country: US (occurrence: US)
  Receive Date: 20170818
  Receipt Date: 20190919
  Transmission Date: 20191004
  Serious: Yes (Death, Hospitalization, Other)
  Sender: FDA-Public Use
  Company Number: US-ACTELION-A-US2015-121284

PATIENT
  Age: 62 Year
  Sex: Male
  Weight: 94.33 kg

DRUGS (9)
  1. REVATIO [Concomitant]
     Active Substance: SILDENAFIL CITRATE
     Dosage: 20 MG, TID
  2. PERCOCET [Concomitant]
     Active Substance: ACETAMINOPHEN\OXYCODONE HYDROCHLORIDE
     Dosage: 1 TABLET , Q6HRS,PRN
  3. OPSUMIT [Suspect]
     Active Substance: MACITENTAN
     Indication: PULMONARY ARTERIAL HYPERTENSION
     Dosage: 10 MG, QD
     Route: 048
     Dates: start: 20150415, end: 20190805
  4. ASPIRIN. [Concomitant]
     Active Substance: ASPIRIN
     Dosage: D
  5. FISH OIL [Concomitant]
     Active Substance: FISH OIL
     Dosage: UNK, QD
  6. EPLERENONE. [Concomitant]
     Active Substance: EPLERENONE
     Dosage: 50 MG, BID
  7. TORSEMIDE. [Concomitant]
     Active Substance: TORSEMIDE
     Dosage: 20 MG, BID
  8. MULTIVITAMIN [Concomitant]
     Active Substance: VITAMINS
     Dosage: UNK, QD
  9. REMODULIN [Concomitant]
     Active Substance: TREPROSTINIL
     Dosage: 25 NG/KG, PER MIN

REACTIONS (13)
  - Condition aggravated [Fatal]
  - Hypopnoea [Unknown]
  - Cardiac pacemaker insertion [Recovered/Resolved]
  - Inadequate diet [Unknown]
  - Hypoacusis [Unknown]
  - Bradycardia [Recovered/Resolved]
  - Fluid retention [Recovered/Resolved]
  - Swelling [Unknown]
  - Oedema [Unknown]
  - Atrioventricular block complete [Recovered/Resolved]
  - Treatment noncompliance [Unknown]
  - Malaise [Unknown]
  - Hypoxia [Fatal]

NARRATIVE: CASE EVENT DATE: 20150712
